FAERS Safety Report 20518851 (Version 4)
Quarter: 2022Q4

REPORT INFORMATION
  Report Type: Spontaneous
  Country: US (occurrence: US)
  Receive Date: 20220225
  Receipt Date: 20221129
  Transmission Date: 20230113
  Serious: No
  Sender: FDA-Public Use
  Company Number: US-INCYTE CORPORATION-2022IN001670

PATIENT

DRUGS (5)
  1. JAKAFI [Suspect]
     Active Substance: RUXOLITINIB
     Indication: Myelofibrosis
     Dosage: 10 MILLIGRAM, BID
     Route: 048
     Dates: start: 20220126
  2. JAKAFI [Suspect]
     Active Substance: RUXOLITINIB
     Dosage: 5 MILLIGRAM, BID, 2 TABLETS IN AM AND 3 TABLETS IN PM
     Route: 048
     Dates: start: 20220126
  3. JAKAFI [Suspect]
     Active Substance: RUXOLITINIB
     Dosage: 5 MILLIGRAM, BID, 2 TABLETS IN AM AND 3 TABLETS IN PM
     Route: 048
     Dates: start: 202202
  4. JAKAFI [Suspect]
     Active Substance: RUXOLITINIB
     Dosage: TAKE 2 TABLETS (10MG) BY MOUTH EVERY MORNING BEFORE BREAKFAST AND 3 TABLETS (15MG) AT BEDTIME.
     Route: 048
     Dates: start: 20221026
  5. JAKAFI [Suspect]
     Active Substance: RUXOLITINIB
     Dosage: TAKE 2 TABLETS BY MOUTH EVERY MORNING BEFORE BREAKFAST AND 3 TABLETS AT BEDTIME.
     Route: 048
     Dates: start: 202205

REACTIONS (4)
  - Fatigue [Not Recovered/Not Resolved]
  - Asthenia [Not Recovered/Not Resolved]
  - Decreased activity [Not Recovered/Not Resolved]
  - Diarrhoea [Not Recovered/Not Resolved]
